FAERS Safety Report 5814941-1 (Version None)
Quarter: 2008Q3

REPORT INFORMATION
  Report Type: 
  Country: None (occurrence: None)
  Receive Date: 20080718
  Receipt Date: 20080709
  Transmission Date: 20090109
  Serious: Yes (Other)
  Sender: FDA-Public Use
  Company Number: PHHY2008JP12920

PATIENT
  Age: 79 Year
  Sex: Male

DRUGS (4)
  1. LOCHOL [Suspect]
     Indication: HYPERCHOLESTEROLAEMIA
     Dosage: 20 MG, QD
     Route: 048
     Dates: start: 20080619, end: 20080621
  2. AMLODIPINE [Concomitant]
     Dosage: 5 MG, QD
     Route: 048
     Dates: start: 20080619
  3. CARDENALIN [Concomitant]
     Dosage: 1 MG, QD
     Route: 048
     Dates: start: 20070910
  4. NORVASC [Concomitant]
     Dosage: 5 MG, QD
     Route: 048
     Dates: start: 20070910, end: 20080619

REACTIONS (3)
  - MYOGLOBIN BLOOD PRESENT [None]
  - PALPITATIONS [None]
  - TACHYCARDIA [None]
